FAERS Safety Report 10191534 (Version 1)
Quarter: 2014Q2

REPORT INFORMATION
  Report Type: Spontaneous
  Country: US (occurrence: None)
  Receive Date: 20140522
  Receipt Date: 20140522
  Transmission Date: 20141212
  Serious: Yes (Other)
  Sender: FDA-Public Use
  Company Number: None

PATIENT
  Age: 55 Year
  Sex: Male
  Weight: 88.45 kg

DRUGS (1)
  1. ADDERALL XR 30 MG ACTAVIS [Suspect]
     Indication: ATTENTION DEFICIT/HYPERACTIVITY DISORDER
     Route: 048
     Dates: start: 20140507, end: 20140520

REACTIONS (8)
  - Fatigue [None]
  - Anxiety [None]
  - Blood pressure increased [None]
  - Vision blurred [None]
  - Dizziness [None]
  - Disorientation [None]
  - Headache [None]
  - Product substitution issue [None]
